FAERS Safety Report 6766311-X (Version None)
Quarter: 2010Q2

REPORT INFORMATION
  Report Type: 
  Country: None (occurrence: None)
  Receive Date: 20100609
  Receipt Date: 20100505
  Transmission Date: 20101027
  Serious: No
  Sender: FDA-Public Use
  Company Number: 2010011247

PATIENT
  Age: 15 Month
  Sex: Female
  Weight: 9.5255 kg

DRUGS (3)
  1. CHILDREN'S ZYRTEC ALLERGY [Suspect]
     Indication: HYPERSENSITIVITY
     Dosage: UNSPECIFIED ONCE DAILY, ORAL
     Route: 048
     Dates: start: 20100416, end: 20100423
  2. PARACETAMOL (PARACETAMOL) [Suspect]
     Indication: PYREXIA
     Dosage: UNSPECIFIED
  3. IBUPROFEN [Suspect]
     Indication: PYREXIA
     Dosage: UNSPECIFIED

REACTIONS (3)
  - PRODUCT QUALITY ISSUE [None]
  - PYREXIA [None]
  - WRONG DRUG ADMINISTERED [None]
